FAERS Safety Report 4317582-0 (Version None)
Quarter: 2004Q1

REPORT INFORMATION
  Report Type: 
  Country: None (occurrence: None)
  Receive Date: 20040312
  Receipt Date: 20040303
  Transmission Date: 20041129
  Serious: Yes (Hospitalization)
  Sender: FDA-Public Use
  Company Number: 30018734-NA01-1

PATIENT
  Sex: Female

DRUGS (2)
  1. EXTRANEAL [Suspect]
     Indication: PERITONEAL DIALYSIS
     Dosage: 7.5 % ICODEXTRIN 2L ONCE DAILY IP
     Route: 033
     Dates: start: 20031120, end: 20040220
  2. DIANEAL [Concomitant]

REACTIONS (2)
  - PANCREATITIS [None]
  - PLATELET COUNT DECREASED [None]
